FAERS Safety Report 7251147-6 (Version None)
Quarter: 2011Q1

REPORT INFORMATION
  Report Type: 
  Country: None (occurrence: None)
  Receive Date: 20110128
  Receipt Date: 20110114
  Transmission Date: 20110831
  Serious: No
  Sender: FDA-Public Use
  Company Number: B0694437A

PATIENT

DRUGS (1)
  1. RELENZA [Suspect]
     Dates: start: 20110114

REACTIONS (1)
  - DRUG EXPOSURE VIA BREAST MILK [None]
